FAERS Safety Report 8359774-X (Version None)
Quarter: 2012Q2

REPORT INFORMATION
  Report Type: 
  Country: None (occurrence: None)
  Receive Date: 20120515
  Receipt Date: 20120508
  Transmission Date: 20120825
  Serious: Yes (Life-Threatening, Other)
  Sender: FDA-Public Use
  Company Number: PHHY2011VE105857

PATIENT
  Sex: Female

DRUGS (5)
  1. ZOLEDRONOC ACID [Suspect]
     Dosage: 5 MG, YEARLY
     Route: 042
     Dates: start: 20110628
  2. LACTOBACILLUS [Concomitant]
  3. ZOLEDRONOC ACID [Suspect]
     Indication: OSTEOPOROSIS
     Dosage: 5 MG, YEARLY
     Route: 042
     Dates: start: 20100629
  4. CALCIBON (CALCIUM CITRATE) [Concomitant]
     Dosage: 1500MG/2000IU ONCE A DAY
  5. LOPERAMIDE [Concomitant]
     Dosage: 1 DF, DAILY

REACTIONS (13)
  - HYPOPHAGIA [None]
  - OESOPHAGEAL OBSTRUCTION [None]
  - LOCAL SWELLING [None]
  - DEPRESSION [None]
  - PYREXIA [None]
  - DRUG INEFFECTIVE [None]
  - CONDITION AGGRAVATED [None]
  - NAUSEA [None]
  - MALAISE [None]
  - DYSSTASIA [None]
  - FEELING ABNORMAL [None]
  - DIARRHOEA [None]
  - BLINDNESS [None]
